FAERS Safety Report 8061046-8 (Version None)
Quarter: 2012Q1

REPORT INFORMATION
  Report Type: 
  Country: None (occurrence: None)
  Receive Date: 20120120
  Receipt Date: 20110623
  Transmission Date: 20120608
  Serious: No
  Sender: FDA-Public Use
  Company Number: US-ALLERGAN-1106123US

PATIENT
  Age: 70 Year
  Sex: Male

DRUGS (3)
  1. REFRESH [Concomitant]
     Indication: PRODUCT USED FOR UNKNOWN INDICATION
     Dosage: AT NIGHT
     Route: 065
  2. RESTASIS [Suspect]
     Indication: DRY EYE
     Dosage: AT NIGHT
     Route: 047
     Dates: start: 20110501
  3. RESTASIS [Suspect]
     Dosage: UNK
     Route: 047

REACTIONS (2)
  - EYE IRRITATION [None]
  - EYE PAIN [None]
